FAERS Safety Report 4442810-0 (Version None)
Quarter: 2004Q3

REPORT INFORMATION
  Report Type: 
  Country: None (occurrence: None)
  Receive Date: 20040903
  Receipt Date: 20040608
  Transmission Date: 20050211
  Serious: Yes (Other)
  Sender: FDA-Public Use
  Company Number: 2004UW11862

PATIENT
  Age: 54 Year
  Sex: Female
  Weight: 47.6277 kg

DRUGS (2)
  1. CRESTOR [Suspect]
     Indication: BLOOD CHOLESTEROL INCREASED
     Dosage: 10 MG DAILY PO
     Route: 048
     Dates: start: 20040606
  2. CLARINEX [Concomitant]

REACTIONS (3)
  - ABDOMINAL DISTENSION [None]
  - MUSCULOSKELETAL STIFFNESS [None]
  - NAUSEA [None]
